FAERS Safety Report 4893191-X (Version None)
Quarter: 2005Q4

REPORT INFORMATION
  Report Type: 
  Country: None (occurrence: None)
  Receive Date: 20051223
  Receipt Date: 20050902
  Transmission Date: 20060501
  Serious: No
  Sender: FDA-Public Use
  Company Number: 2005PV001772

PATIENT
  Age: 68 Year
  Sex: Female
  Weight: 56.246 kg

DRUGS (12)
  1. SYMLIN [Suspect]
     Indication: DIABETES MELLITUS INSULIN-DEPENDENT
     Dosage: 60 MCG;SC ; 45 MCG;SC ; 30 MCG; SC ; 15 MCG;SC
     Route: 058
     Dates: start: 20050706, end: 20050714
  2. SYMLIN [Suspect]
     Indication: DIABETES MELLITUS INSULIN-DEPENDENT
     Dosage: 60 MCG;SC ; 45 MCG;SC ; 30 MCG; SC ; 15 MCG;SC
     Route: 058
     Dates: start: 20050715, end: 20050717
  3. SYMLIN [Suspect]
     Indication: DIABETES MELLITUS INSULIN-DEPENDENT
     Dosage: 60 MCG;SC ; 45 MCG;SC ; 30 MCG; SC ; 15 MCG;SC
     Route: 058
     Dates: start: 20050718, end: 20050721
  4. SYMLIN [Suspect]
     Indication: DIABETES MELLITUS INSULIN-DEPENDENT
     Dosage: 60 MCG;SC ; 45 MCG;SC ; 30 MCG; SC ; 15 MCG;SC
     Route: 058
     Dates: start: 20050722, end: 20050727
  5. LANTUS [Concomitant]
  6. ASPIRIN [Concomitant]
  7. METERED DOSE INHALER [Concomitant]
  8. FOSAMAX [Concomitant]
  9. SYNTHROID [Concomitant]
  10. ZOCOR [Concomitant]
  11. MULTIIVITAMINS [Concomitant]
  12. HUMALOG [Concomitant]

REACTIONS (2)
  - HYPERGLYCAEMIA [None]
  - HYPOGLYCAEMIA [None]
